FAERS Safety Report 18625775 (Version 1)
Quarter: 2020Q4

REPORT INFORMATION
  Report Type: Spontaneous
  Country: CA (occurrence: CA)
  Receive Date: 20201217
  Receipt Date: 20201217
  Transmission Date: 20210114
  Serious: Yes (Other)
  Sender: FDA-Public Use
  Company Number: CA-ROCHE-2733230

PATIENT
  Sex: Male

DRUGS (2)
  1. LUCENTIS [Suspect]
     Active Substance: RANIBIZUMAB
     Indication: PRODUCT USED FOR UNKNOWN INDICATION
     Route: 065
     Dates: start: 201911
  2. COVERSYL [Suspect]
     Active Substance: PERINDOPRIL
     Indication: PRODUCT USED FOR UNKNOWN INDICATION
     Route: 065
     Dates: start: 201911

REACTIONS (8)
  - Diabetic nephropathy [Unknown]
  - Microcytic anaemia [Unknown]
  - Intercapillary glomerulosclerosis [Unknown]
  - Renal impairment [Unknown]
  - Glomerular filtration rate abnormal [Unknown]
  - Blood pressure abnormal [Unknown]
  - Mean cell volume decreased [Unknown]
  - Blood creatinine abnormal [Unknown]
